FAERS Safety Report 23649600 (Version 2)
Quarter: 2024Q2

REPORT INFORMATION
  Report Type: Spontaneous
  Country: US (occurrence: US)
  Receive Date: 20240319
  Receipt Date: 20240628
  Transmission Date: 20240716
  Serious: No
  Sender: FDA-Public Use
  Company Number: US-SANDOZ-SDZ2024US029233

PATIENT
  Sex: Female

DRUGS (1)
  1. ALBUTEROL SULFATE [Suspect]
     Active Substance: ALBUTEROL SULFATE
     Indication: Bronchitis
     Dosage: 2PUFFS, 6 HOURS AS NEEDED
     Route: 048
     Dates: start: 20240306

REACTIONS (3)
  - Device mechanical issue [Unknown]
  - Device delivery system issue [Unknown]
  - Off label use [Unknown]
